FAERS Safety Report 6242071-6 (Version None)
Quarter: 2009Q2

REPORT INFORMATION
  Report Type: 
  Country: None (occurrence: None)
  Receive Date: 20090622
  Receipt Date: 20090608
  Transmission Date: 20091009
  Serious: Yes (Other)
  Sender: FDA-Public Use
  Company Number: 1-18787110

PATIENT
  Sex: Male

DRUGS (4)
  1. ULTIVA [Suspect]
     Indication: ANAESTHESIA
     Dosage: 0.1-0.15 MCG/KG/MINUTE, INTRAVENOUS
     Route: 042
  2. PROPOFOL [Concomitant]
  3. DOPAMINE HCL [Concomitant]
  4. OXYGEN [Concomitant]

REACTIONS (2)
  - RESPIRATORY DEPRESSION [None]
  - URINE OUTPUT DECREASED [None]
